FAERS Safety Report 4341450-1 (Version None)
Quarter: 2004Q2

REPORT INFORMATION
  Report Type: 
  Country: None (occurrence: None)
  Receive Date: 20040419
  Receipt Date: 20040414
  Transmission Date: 20050107
  Serious: Yes (Hospitalization)
  Sender: FDA-Public Use
  Company Number: 7807

PATIENT
  Age: 67 Year
  Sex: Female

DRUGS (2)
  1. IOPAMIDOL [Suspect]
     Indication: COMPUTERISED TOMOGRAM
     Dosage: NI; IV
     Route: 042
  2. IOMEPROL [Suspect]
     Indication: COMPUTERISED TOMOGRAM
     Dosage: NI; IV
     Route: 042

REACTIONS (18)
  - ABDOMINAL PAIN [None]
  - BLOOD IMMUNOGLOBULIN M INCREASED [None]
  - CHOLELITHIASIS [None]
  - CONDITION AGGRAVATED [None]
  - CRYOGLOBULINAEMIA [None]
  - FATIGUE [None]
  - GLOMERULONEPHRITIS MEMBRANOPROLIFERATIVE [None]
  - HAEMATURIA [None]
  - HAEMODIALYSIS [None]
  - HEPATIC NEOPLASM MALIGNANT [None]
  - HYPOCOMPLEMENTAEMIA [None]
  - MUSCULOSKELETAL STIFFNESS [None]
  - NEPHROTIC SYNDROME [None]
  - OEDEMA PERIPHERAL [None]
  - PROTEIN INDUCED BY VITAMIN K ABSENCE OR ANTAGONIST II INCREASED [None]
  - PYREXIA [None]
  - RENAL FAILURE [None]
  - RHEUMATOID FACTOR POSITIVE [None]
